FAERS Safety Report 9404754 (Version 2)
Quarter: 2013Q3

REPORT INFORMATION
  Report Type: Spontaneous
  Country: FR (occurrence: FR)
  Receive Date: 20130717
  Receipt Date: 20130801
  Transmission Date: 20140515
  Serious: Yes (Hospitalization)
  Sender: FDA-Public Use
  Company Number: FR-PFIZER INC-2013206257

PATIENT
  Age: 65 Year
  Sex: Female

DRUGS (12)
  1. EUPANTOL [Suspect]
     Dosage: 20 MG, DAILY
     Route: 048
  2. BISOPROLOL FUMARATE [Suspect]
     Dosage: 10 MG, DAILY
     Route: 048
  3. SIMVASTATIN [Suspect]
     Dosage: 20 MG, DAILY
     Route: 048
  4. JANUVIA [Suspect]
     Dosage: 100 MG, 1X/DAY
     Route: 048
     Dates: end: 20130617
  5. PRADAXA [Suspect]
     Dosage: 10 MG, DAILY
     Route: 048
     Dates: end: 20121014
  6. PRADAXA [Suspect]
     Dosage: UNK
     Route: 048
  7. KARDEGIC [Suspect]
     Dosage: 75 MG, DAILY
     Route: 048
  8. COVERSYL [Suspect]
     Dosage: 2.5 MG, DAILY
     Route: 048
  9. LANTUS [Suspect]
     Dosage: 56 IU, DAILY
     Route: 058
  10. ZOLPIDEM [Suspect]
     Dosage: 10 MG, DAILY
     Route: 048
  11. VIRLIX [Suspect]
     Dosage: 10 MG, DAILY
     Route: 048
  12. DIVARIUS [Suspect]
     Dosage: 20 MG, DAILY
     Route: 048

REACTIONS (1)
  - Pancreatitis acute [Recovered/Resolved]
